FAERS Safety Report 19751854 (Version 1)
Quarter: 2021Q3

REPORT INFORMATION
  Report Type: Other
  Country: US (occurrence: US)
  Receive Date: 20210827
  Receipt Date: 20210827
  Transmission Date: 20211014
  Serious: Yes (Other)
  Sender: FDA-Public Use
  Company Number: US-SAPTALIS PHARMACEUTICALS,LLC-000105

PATIENT
  Age: 18 Year
  Sex: Female

DRUGS (5)
  1. DOXYCYCLINE. [Concomitant]
     Active Substance: DOXYCYCLINE
     Indication: KERATITIS
     Route: 048
  2. PREDNISOLONE ACETATE. [Suspect]
     Active Substance: PREDNISOLONE ACETATE
     Indication: KERATITIS
     Dosage: PREDNISOLONE, 1% 3 TIMES DAILY
  3. OFLOXACIN. [Concomitant]
     Active Substance: OFLOXACIN
     Indication: KERATITIS
     Route: 061
  4. ERYTHROMYCIN. [Suspect]
     Active Substance: ERYTHROMYCIN
     Indication: KERATITIS
     Route: 048
  5. PREDNISOLONE ACETATE. [Suspect]
     Active Substance: PREDNISOLONE ACETATE
     Indication: KERATITIS
     Dosage: 4 TIMES DAILY

REACTIONS (3)
  - Keratitis fungal [Recovered/Resolved]
  - Condition aggravated [Recovered/Resolved]
  - Therapy non-responder [Unknown]
